FAERS Safety Report 10524485 (Version 3)
Quarter: 2014Q4

REPORT INFORMATION
  Report Type: Spontaneous
  Country: US (occurrence: US)
  Receive Date: 20141017
  Receipt Date: 20141209
  Transmission Date: 20150528
  Serious: Yes (Other)
  Sender: FDA-Public Use
  Company Number: US-BAYER-2014-150761

PATIENT
  Age: 33 Year
  Sex: Female
  Weight: 100.23 kg

DRUGS (1)
  1. MIRENA [Suspect]
     Active Substance: LEVONORGESTREL
     Indication: CONTRACEPTION
     Dosage: 20 MCG/24HR, CONT
     Route: 015
     Dates: start: 20130519

REACTIONS (3)
  - Pregnancy with contraceptive device [None]
  - Device dislocation [None]
  - Drug ineffective [None]

NARRATIVE: CASE EVENT DATE: 2014
